FAERS Safety Report 21986163 (Version 4)
Quarter: 2024Q2

REPORT INFORMATION
  Report Type: Spontaneous
  Country: US (occurrence: US)
  Receive Date: 20230213
  Receipt Date: 20240505
  Transmission Date: 20240716
  Serious: No
  Sender: FDA-Public Use
  Company Number: US-SA-SAC20230209000310

PATIENT
  Age: 21 Year
  Sex: Female

DRUGS (2)
  1. DUPIXENT [Suspect]
     Active Substance: DUPILUMAB
     Indication: Dermatitis
     Dosage: 300 MG, QOW
     Route: 058
     Dates: start: 202101
  2. MIRENA [Concomitant]
     Active Substance: LEVONORGESTREL
     Indication: Dysmenorrhoea
     Dosage: 300MG Q14D

REACTIONS (6)
  - Injection site pain [Unknown]
  - Dry skin [Unknown]
  - Skin exfoliation [Unknown]
  - Eye pruritus [Unknown]
  - Food allergy [Unknown]
  - Product use in unapproved indication [Unknown]

NARRATIVE: CASE EVENT DATE: 20210101
